FAERS Safety Report 5198688-3 (Version None)
Quarter: 2007Q1

REPORT INFORMATION
  Report Type: 
  Country: None (occurrence: None)
  Receive Date: 20070104
  Receipt Date: 20061228
  Transmission Date: 20070707
  Serious: Yes (Other)
  Sender: FDA-Public Use
  Company Number: ES-SANOFI-SYNTHELABO-A01200611255

PATIENT
  Age: 63 Year
  Sex: Male

DRUGS (3)
  1. CALCIUM FOLINATE [Concomitant]
     Indication: COLON CANCER
     Dosage: UNK
     Dates: start: 20060405, end: 20060405
  2. FLUOROURACIL [Suspect]
     Dosage: UNK
     Dates: start: 20060405, end: 20060406
  3. ELOXATIN [Suspect]
     Indication: COLON CANCER
     Dosage: UNK
     Route: 042
     Dates: start: 20060405, end: 20060405

REACTIONS (1)
  - DEMYELINATING POLYNEUROPATHY [None]
